FAERS Safety Report 4372019-0 (Version None)
Quarter: 2004Q2

REPORT INFORMATION
  Report Type: 
  Country: None (occurrence: None)
  Receive Date: 20040602
  Receipt Date: 20040602
  Transmission Date: 20050107
  Serious: No
  Sender: FDA-Public Use
  Company Number: None

PATIENT
  Age: 80 Year
  Sex: Female
  Weight: 50 kg

DRUGS (2)
  1. HEPARIN [Suspect]
     Indication: DEEP VENOUS THROMBOSIS PROPHYLAXIS
     Dosage: 5000 UNITS EVERY 12 H SUBCUTANEOUS
     Route: 058
     Dates: start: 20040422, end: 20040526
  2. ZYVOX [Suspect]
     Indication: GLYCOPEPTIDE ANTIBIOTIC RESISTANT ENTEROCOCCAL INFECTION
     Dosage: ZYVOX EVERY 12 H ORAL
     Route: 048
     Dates: start: 20040422, end: 20040526

REACTIONS (1)
  - PLATELET COUNT DECREASED [None]
